FAERS Safety Report 19753133 (Version 4)
Quarter: 2021Q3

REPORT INFORMATION
  Report Type: Report from Study
  Country: US (occurrence: US)
  Receive Date: 20210826
  Receipt Date: 20210927
  Transmission Date: 20211014
  Serious: No
  Sender: FDA-Public Use
  Company Number: US-B.I. PHARMACEUTICALS,INC./RIDGEFIELD-2021-BI-123622

PATIENT
  Age: 62 Year
  Sex: Female

DRUGS (1)
  1. OFEV [Suspect]
     Active Substance: NINTEDANIB
     Indication: IDIOPATHIC PULMONARY FIBROSIS
     Dosage: TAKE 150MG BY MOUTH TWICE DAILY
     Route: 048
     Dates: start: 20210805

REACTIONS (7)
  - Hepatic enzyme increased [Unknown]
  - Hepatic enzyme increased [Recovered/Resolved]
  - Hypophagia [Recovered/Resolved]
  - Abdominal pain upper [Recovered/Resolved]
  - Abdominal discomfort [Not Recovered/Not Resolved]
  - Diarrhoea [Recovered/Resolved]
  - Dyspepsia [Recovered/Resolved]

NARRATIVE: CASE EVENT DATE: 20210823
